FAERS Safety Report 22163085 (Version 1)
Quarter: 2023Q2

REPORT INFORMATION
  Report Type: Spontaneous
  Country: US (occurrence: US)
  Receive Date: 20230401
  Receipt Date: 20230401
  Transmission Date: 20230721
  Serious: No
  Sender: FDA-Public Use
  Company Number: US-002147023-NVSC2023US075329

PATIENT
  Sex: Female

DRUGS (2)
  1. LEQVIO [Suspect]
     Active Substance: INCLISIRAN SODIUM
     Indication: Drug intolerance
     Dosage: 284 MG, OTHER (DAY 0, MONTH 3, EVERY 6 MONTHS)
     Route: 058
     Dates: start: 20221021, end: 20230328
  2. LEQVIO [Suspect]
     Active Substance: INCLISIRAN SODIUM
     Indication: Coronary artery disease
     Dosage: UNK
     Route: 058

REACTIONS (4)
  - High density lipoprotein increased [Recovered/Resolved]
  - Blood cholesterol decreased [Recovered/Resolved]
  - Low density lipoprotein decreased [Recovered/Resolved]
  - Non-high-density lipoprotein cholesterol decreased [Recovered/Resolved]

NARRATIVE: CASE EVENT DATE: 20230328
